FAERS Safety Report 17789436 (Version 1)
Quarter: 2020Q2

REPORT INFORMATION
  Report Type: Spontaneous
  Country: BE (occurrence: BE)
  Receive Date: 20200515
  Receipt Date: 20200515
  Transmission Date: 20200714
  Serious: Yes (Death, Other)
  Sender: FDA-Public Use
  Company Number: BE-SA-2020SA110587

PATIENT
  Age: 62 Year
  Sex: Male

DRUGS (4)
  1. KEVZARA [Suspect]
     Active Substance: SARILUMAB
     Indication: PNEUMONIA
     Dosage: 400 MG
     Route: 042
     Dates: start: 20200424
  2. PLAQUENIL [Concomitant]
     Active Substance: HYDROXYCHLOROQUINE SULFATE
     Dosage: UNK
  3. KEVZARA [Suspect]
     Active Substance: SARILUMAB
     Indication: COVID-19
  4. KEVZARA [Suspect]
     Active Substance: SARILUMAB
     Indication: PRODUCT USE IN UNAPPROVED INDICATION

REACTIONS (2)
  - Off label use [Unknown]
  - Respiratory failure [Fatal]

NARRATIVE: CASE EVENT DATE: 20200424
